FAERS Safety Report 7025154-2 (Version None)
Quarter: 2010Q4

REPORT INFORMATION
  Report Type: 
  Country: None (occurrence: None)
  Receive Date: 20101001
  Receipt Date: 20100920
  Transmission Date: 20110411
  Serious: Yes (Hospitalization, Other)
  Sender: FDA-Public Use
  Company Number: US-ELI_LILLY_AND_COMPANY-US201007006946

PATIENT
  Sex: Female

DRUGS (9)
  1. FORTEO [Suspect]
     Indication: OSTEOPOROSIS
     Dates: start: 20100708
  2. LORTAB [Concomitant]
  3. DIAZEPAM [Concomitant]
     Indication: MUSCLE SPASMS
     Dosage: 5 MG, AS NEEDED
  4. ESTRADIOL [Concomitant]
     Dosage: UNK, DAILY (1/D)
  5. PRILOSEC [Concomitant]
     Dosage: 20 MG, DAILY (1/D)
  6. ANTIVERT [Concomitant]
     Dosage: UNK, AS NEEDED
  7. EFFEXOR [Concomitant]
     Dosage: 75 MG, DAILY (1/D)
  8. IMITREX [Concomitant]
     Dosage: 100 MG, AS NEEDED
  9. MIRALAX [Concomitant]
     Dosage: UNK, AS NEEDED

REACTIONS (11)
  - BACK PAIN [None]
  - BLADDER DILATATION [None]
  - FALL [None]
  - FRACTURED SACRUM [None]
  - HYPOAESTHESIA [None]
  - INJECTION SITE ERYTHEMA [None]
  - INJECTION SITE HAEMATOMA [None]
  - INJECTION SITE OEDEMA [None]
  - INJECTION SITE PAIN [None]
  - NEURALGIA [None]
  - URINARY RETENTION [None]
